FAERS Safety Report 20942487 (Version 1)
Quarter: 2022Q2

REPORT INFORMATION
  Report Type: Spontaneous
  Country: DE (occurrence: DE)
  Receive Date: 20220610
  Receipt Date: 20220610
  Transmission Date: 20220721
  Serious: Yes (Hospitalization, Other)
  Sender: FDA-Public Use
  Company Number: None

PATIENT
  Age: 66 Year
  Sex: Female
  Weight: 67 kg

DRUGS (19)
  1. KYPROLIS [Suspect]
     Active Substance: CARFILZOMIB
     Indication: Plasma cell myeloma refractory
     Dosage: D1/2, D8/9, D 15/16 AND CYCLE DISSOLVED IN GLUCOSE 5 % 100 ML
     Route: 042
  2. UNSPECIFIED INGREDIENT [Concomitant]
     Active Substance: UNSPECIFIED INGREDIENT
     Dosage: UNK
     Route: 058
  3. DIMETHINDENE [Concomitant]
     Active Substance: DIMETHINDENE
     Dosage: DAY 1 AND 15 ADMINISTRATION 60 MIN BEFORE DARTUMUMAB
     Route: 040
  4. ACETAMINOPHEN [Concomitant]
     Active Substance: ACETAMINOPHEN
     Dosage: DAY 1 AND 15 ADMINISTRATION 60 MIN BEFORE DARTUMUMAB
     Route: 048
  5. ZOLEDRONIC ACID [Concomitant]
     Active Substance: ZOLEDRONIC ACID
     Dosage: UNK
     Dates: start: 201302
  6. MCP [Concomitant]
     Active Substance: METOCLOPRAMIDE HYDROCHLORIDE
     Dosage: UNK UNK, AS NECESSARY
  7. FOLIC ACID [Concomitant]
     Active Substance: FOLIC ACID
     Dosage: 1X/WOCHE
  8. BISOPROLOL [Concomitant]
     Active Substance: BISOPROLOL
     Dosage: 1-0-0
  9. ACYCLOVIR [Concomitant]
     Active Substance: ACYCLOVIR
     Dosage: 1-0-0
  10. DEXAMETHASONE [Concomitant]
     Active Substance: DEXAMETHASONE
     Dosage: ADMINISTRATION AT LEAST 30 MIN BEFORE KYPROLIS (DISSOLVED IN 100 ML DAY 1,2, 8, 9, 15, 16, 22
     Route: 042
  11. DEXAMETHASONE [Concomitant]
     Active Substance: DEXAMETHASONE
     Dosage: 1-0-0 MITTWOCH
  12. TORSEMIDE [Concomitant]
     Active Substance: TORSEMIDE
     Dosage: 1-0-0
  13. LEVOTHYROXINE SODIUM [Concomitant]
     Active Substance: LEVOTHYROXINE SODIUM
     Dosage: 1-0-0
  14. SPIRONOLACTONE [Concomitant]
     Active Substance: SPIRONOLACTONE
     Dosage: 1-0-0
  15. OCTAGAM IMMUNE GLOBULIN (HUMAN) [Concomitant]
     Active Substance: HUMAN IMMUNOGLOBULIN G
     Indication: Bronchitis
     Dosage: UNK
  16. DARATUMUMAB [Concomitant]
     Active Substance: DARATUMUMAB
     Indication: Plasma cell myeloma refractory
     Dosage: DISSOLVED IN NACL 0.9% 500 ML DAY 1 AND 15
     Route: 042
  17. COTRIM [Concomitant]
     Active Substance: SULFAMETHOXAZOLE\TRIMETHOPRIM
     Dosage: 1-0-0 (MONDAY, WEDNESDAY, FRIDAY)
  18. EDOXABAN TOSYLATE [Concomitant]
     Active Substance: EDOXABAN TOSYLATE
     Indication: Pulmonary embolism
     Dosage: 1-0-0
  19. PANTOPRAZOLE SODIUM [Concomitant]
     Active Substance: PANTOPRAZOLE SODIUM
     Dosage: UNK UNK, AS NECESSARY

REACTIONS (2)
  - Left ventricular failure [Not Recovered/Not Resolved]
  - Dyspnoea exertional [Not Recovered/Not Resolved]

NARRATIVE: CASE EVENT DATE: 20220401
